FAERS Safety Report 23933530 (Version 1)
Quarter: 2024Q2

REPORT INFORMATION
  Report Type: Spontaneous
  Country: CN (occurrence: CN)
  Receive Date: 20240603
  Receipt Date: 20240603
  Transmission Date: 20240716
  Serious: Yes (Life-Threatening, Hospitalization, Other)
  Sender: FDA-Public Use
  Company Number: CN-002147023-NVSC2024CN115004

PATIENT
  Age: 79 Year
  Sex: Male
  Weight: 55.1 kg

DRUGS (3)
  1. SACUBITRIL\VALSARTAN [Suspect]
     Active Substance: SACUBITRIL\VALSARTAN
     Indication: Cardiac failure acute
     Dosage: 100 MG, BID
     Route: 048
     Dates: start: 20240503, end: 20240518
  2. CAPTOPRIL [Suspect]
     Active Substance: CAPTOPRIL
     Indication: Hypertension
     Dosage: 25 MG, QD
     Route: 048
     Dates: start: 20240503, end: 20240518
  3. RIVAROXABAN [Concomitant]
     Active Substance: RIVAROXABAN
     Indication: Atrial fibrillation
     Dosage: 10 MG, QD
     Route: 048
     Dates: start: 20240503, end: 20240518

REACTIONS (9)
  - Erythema multiforme [Recovering/Resolving]
  - Skin lesion [Unknown]
  - Pruritus [Unknown]
  - Papule [Unknown]
  - Blister [Unknown]
  - Cardiac failure [Not Recovered/Not Resolved]
  - Eosinophil count increased [Unknown]
  - Tachypnoea [Unknown]
  - Cardiac discomfort [Unknown]

NARRATIVE: CASE EVENT DATE: 20240514
